FAERS Safety Report 5021185-2 (Version None)
Quarter: 2006Q2

REPORT INFORMATION
  Report Type: 
  Country: None (occurrence: None)
  Receive Date: 20060608
  Receipt Date: 20060529
  Transmission Date: 20061013
  Serious: Yes (Hospitalization)
  Sender: FDA-Public Use
  Company Number: 2006SE03067

PATIENT
  Age: 46 Year
  Sex: Female

DRUGS (1)
  1. ZOMIG [Suspect]
     Route: 048
     Dates: start: 20060401, end: 20060401

REACTIONS (1)
  - CEREBRAL INFARCTION [None]
